FAERS Safety Report 6219788-2 (Version None)
Quarter: 2009Q2

REPORT INFORMATION
  Report Type: 
  Country: None (occurrence: None)
  Receive Date: 20090609
  Receipt Date: 20090602
  Transmission Date: 20091009
  Serious: Yes (Hospitalization)
  Sender: FDA-Public Use
  Company Number: B0576942A

PATIENT
  Sex: Male

DRUGS (8)
  1. AMOXICILLIN AND CLAVULANATE POTASSIUM [Suspect]
     Route: 065
     Dates: start: 20071231, end: 20080118
  2. LYRICA [Suspect]
     Route: 048
     Dates: start: 20080111, end: 20080122
  3. SEROPRAM [Suspect]
     Dosage: 20MG PER DAY
     Route: 048
     Dates: start: 20080117, end: 20080122
  4. AERIUS [Suspect]
     Dosage: 5MG PER DAY
     Route: 048
     Dates: start: 20080114, end: 20080122
  5. ACTISKENAN [Suspect]
     Dosage: 5MG VARIABLE DOSE
     Route: 048
     Dates: start: 20080111, end: 20080122
  6. XATRAL LP [Suspect]
     Indication: DYSURIA
     Dosage: 10MG PER DAY
     Route: 048
     Dates: start: 20071220
  7. OFLOXACINE [Suspect]
     Route: 065
     Dates: start: 20071231, end: 20080118
  8. FLUDEX LP [Concomitant]
     Route: 048
     Dates: start: 20071227, end: 20080117

REACTIONS (4)
  - AGRANULOCYTOSIS [None]
  - LUNG INFECTION [None]
  - NEUTROPENIA [None]
  - PYREXIA [None]
